FAERS Safety Report 14974398 (Version 1)
Quarter: 2018Q2

REPORT INFORMATION
  Report Type: Spontaneous
  Country: US (occurrence: US)
  Receive Date: 20180514
  Receipt Date: 20180514
  Transmission Date: 20180711
  Serious: No
  Sender: FDA-Public Use
  Company Number: None

PATIENT
  Age: 62 Year
  Sex: Male

DRUGS (2)
  1. MYCOPHENOLATE 250MG WEST-WARD PHARMACEUTICAL CORP, A HIKMA COMPANY [Suspect]
     Active Substance: MYCOPHENOLATE MOFETIL
     Indication: LUNG TRANSPLANT
     Route: 048
     Dates: start: 20170307
  2. TACROLIMUS 0.5MG, 1MG DR REDDYS [Suspect]
     Active Substance: TACROLIMUS
     Indication: LUNG TRANSPLANT
     Route: 048
     Dates: start: 20170307

REACTIONS (4)
  - Anger [None]
  - Inappropriate affect [None]
  - Dyskinesia [None]
  - Memory impairment [None]

NARRATIVE: CASE EVENT DATE: 20180511
